FAERS Safety Report 9558287 (Version 43)
Quarter: 2017Q2

REPORT INFORMATION
  Report Type: Spontaneous
  Country: CA (occurrence: CA)
  Receive Date: 20130926
  Receipt Date: 20170529
  Transmission Date: 20170830
  Serious: Yes (Hospitalization, Other)
  Sender: FDA-Public Use
  Company Number: CA-ROCHE-1278850

PATIENT
  Age: 47 Year
  Sex: Female

DRUGS (34)
  1. XOLAIR [Suspect]
     Active Substance: OMALIZUMAB
     Dosage: UNK
     Route: 058
     Dates: start: 20131022
  2. XOLAIR [Suspect]
     Active Substance: OMALIZUMAB
     Dosage: UNK
     Route: 058
     Dates: start: 20131203
  3. XOLAIR [Suspect]
     Active Substance: OMALIZUMAB
     Dosage: UNK
     Route: 058
     Dates: start: 20140114
  4. FLOVENT [Concomitant]
     Active Substance: FLUTICASONE PROPIONATE
     Indication: PRODUCT USED FOR UNKNOWN INDICATION
     Route: 065
  5. XOLAIR [Suspect]
     Active Substance: OMALIZUMAB
     Indication: ASTHMA
     Route: 058
     Dates: start: 20130820
  6. XOLAIR [Suspect]
     Active Substance: OMALIZUMAB
     Indication: ECZEMA
     Dosage: UNK
     Route: 058
     Dates: start: 20130905
  7. XOLAIR [Suspect]
     Active Substance: OMALIZUMAB
     Dosage: UNK
     Route: 058
     Dates: start: 20170109
  8. EPIPEN [Suspect]
     Active Substance: EPINEPHRINE
     Indication: PRODUCT USED FOR UNKNOWN INDICATION
     Route: 065
  9. XOLAIR [Suspect]
     Active Substance: OMALIZUMAB
     Dosage: UNK
     Route: 058
     Dates: start: 20160222
  10. XOLAIR [Suspect]
     Active Substance: OMALIZUMAB
     Dosage: UNK
     Route: 058
     Dates: start: 20160321
  11. XOLAIR [Suspect]
     Active Substance: OMALIZUMAB
     Dosage: UNK
     Route: 058
     Dates: start: 20160531
  12. XOLAIR [Suspect]
     Active Substance: OMALIZUMAB
     Dosage: UNK
     Route: 058
     Dates: start: 20161003
  13. XOLAIR [Suspect]
     Active Substance: OMALIZUMAB
     Dosage: UNK
     Route: 058
     Dates: start: 20160404
  14. AVAMYS [Concomitant]
     Active Substance: FLUTICASONE FUROATE
     Indication: PRODUCT USED FOR UNKNOWN INDICATION
     Route: 065
  15. XOLAIR [Suspect]
     Active Substance: OMALIZUMAB
     Dosage: UNK
     Route: 058
     Dates: start: 20141007
  16. XOLAIR [Suspect]
     Active Substance: OMALIZUMAB
     Dosage: UNK
     Route: 058
     Dates: start: 20160418
  17. BENADRYL [Suspect]
     Active Substance: DIPHENHYDRAMINE HYDROCHLORIDE
     Indication: HYPERSENSITIVITY
     Route: 065
  18. XOLAIR [Suspect]
     Active Substance: OMALIZUMAB
     Dosage: UNK
     Route: 058
     Dates: start: 20160307
  19. XOLAIR [Suspect]
     Active Substance: OMALIZUMAB
     Dosage: UNK
     Route: 058
     Dates: start: 20170207
  20. BENADRYL [Suspect]
     Active Substance: DIPHENHYDRAMINE HYDROCHLORIDE
     Indication: FOOD ALLERGY
     Dosage: 2 DF (50 MG), UNK
     Route: 065
  21. REACTINE (CANADA) [Suspect]
     Active Substance: CETIRIZINE HYDROCHLORIDE
     Indication: SEASONAL ALLERGY
     Dosage: UNK
     Route: 065
     Dates: start: 201605
  22. XOLAIR [Suspect]
     Active Substance: OMALIZUMAB
     Dosage: UNK
     Route: 058
     Dates: start: 20140812
  23. XOLAIR [Suspect]
     Active Substance: OMALIZUMAB
     Dosage: 1 OT
     Route: 058
     Dates: start: 20140822
  24. XOLAIR [Suspect]
     Active Substance: OMALIZUMAB
     Dosage: UNK
     Route: 058
     Dates: start: 20160725
  25. XOLAIR [Suspect]
     Active Substance: OMALIZUMAB
     Dosage: UNK
     Route: 058
     Dates: start: 20160919
  26. REACTINE (CANADA) [Suspect]
     Active Substance: CETIRIZINE HYDROCHLORIDE
     Indication: NASAL CONGESTION
     Dosage: QHS (AT BED TIME)
     Route: 065
     Dates: end: 20140701
  27. REACTINE (CANADA) [Suspect]
     Active Substance: CETIRIZINE HYDROCHLORIDE
     Indication: PRURITUS GENERALISED
     Dosage: QHS (AT BEDTIME)
     Route: 065
     Dates: start: 201405, end: 201408
  28. CLAVULIN [Suspect]
     Active Substance: AMOXICILLIN\CLAVULANIC ACID
     Indication: PULMONARY CONGESTION
     Route: 065
  29. XOLAIR [Suspect]
     Active Substance: OMALIZUMAB
     Dosage: UNK
     Route: 058
     Dates: start: 20131008
  30. XOLAIR [Suspect]
     Active Substance: OMALIZUMAB
     Dosage: UNK
     Route: 058
     Dates: start: 20131119
  31. XOLAIR [Suspect]
     Active Substance: OMALIZUMAB
     Dosage: UNK
     Route: 058
     Dates: start: 20131217
  32. XOLAIR [Suspect]
     Active Substance: OMALIZUMAB
     Dosage: UNK
     Route: 058
     Dates: start: 20160208
  33. BENADRYL [Suspect]
     Active Substance: DIPHENHYDRAMINE HYDROCHLORIDE
     Indication: PHARYNGEAL OEDEMA
     Route: 065
  34. BENADRYL [Suspect]
     Active Substance: DIPHENHYDRAMINE HYDROCHLORIDE
     Indication: SENSATION OF FOREIGN BODY
     Route: 065

REACTIONS (43)
  - Pulmonary congestion [Unknown]
  - Headache [Unknown]
  - Asthma [Unknown]
  - Breast pain [Unknown]
  - Inappropriate schedule of drug administration [Unknown]
  - Secretion discharge [Not Recovered/Not Resolved]
  - Aphonia [Unknown]
  - Cellulitis [Recovered/Resolved]
  - Cough [Not Recovered/Not Resolved]
  - Eczema [Recovering/Resolving]
  - Injection site reaction [Recovered/Resolved]
  - Rash erythematous [Recovering/Resolving]
  - Vomiting [Recovered/Resolved]
  - Cellulitis streptococcal [Unknown]
  - Bronchitis [Recovering/Resolving]
  - Head injury [Unknown]
  - Poor quality sleep [Unknown]
  - Sneezing [Unknown]
  - Self esteem decreased [Unknown]
  - Anaphylactic shock [Unknown]
  - Mastitis [Recovering/Resolving]
  - Sensation of foreign body [Recovered/Resolved]
  - Incision site pain [Unknown]
  - Insomnia [Unknown]
  - Fatigue [Not Recovered/Not Resolved]
  - Nausea [Unknown]
  - Heart rate decreased [Not Recovered/Not Resolved]
  - Viral upper respiratory tract infection [Unknown]
  - Generalised erythema [Not Recovered/Not Resolved]
  - Food intolerance [Unknown]
  - Off label use [Unknown]
  - Contusion [Unknown]
  - Food allergy [Unknown]
  - Hypersensitivity [Recovered/Resolved]
  - Decreased appetite [Recovering/Resolving]
  - Dizziness [Not Recovered/Not Resolved]
  - Skin infection [Unknown]
  - Abdominal pain upper [Not Recovered/Not Resolved]
  - Vitamin D deficiency [Unknown]
  - Drug ineffective [Unknown]
  - Pruritus generalised [Recovered/Resolved]
  - Osteoarthritis [Unknown]
  - Pain in extremity [Unknown]

NARRATIVE: CASE EVENT DATE: 20130905
